FAERS Safety Report 8393488-5 (Version None)
Quarter: 2012Q2

REPORT INFORMATION
  Report Type: 
  Country: None (occurrence: None)
  Receive Date: 20120529
  Receipt Date: 20120525
  Transmission Date: 20120825
  Serious: Yes (Hospitalization, Other)
  Sender: FDA-Public Use
  Company Number: FR-ELI_LILLY_AND_COMPANY-FR201204009562

PATIENT
  Age: 49 Year
  Sex: Female
  Weight: 70 kg

DRUGS (2)
  1. BYETTA [Suspect]
     Dosage: 2 DF, QD
  2. AMARYL [Concomitant]
     Dosage: 1 DF, QD
     Route: 048

REACTIONS (8)
  - ECZEMA [None]
  - PEMPHIGOID [None]
  - HERPES SIMPLEX [None]
  - URTICARIA [None]
  - TUBERCULOSIS [None]
  - DERMATITIS BULLOUS [None]
  - RASH PRURITIC [None]
  - INSOMNIA [None]
